FAERS Safety Report 8989312 (Version 1)
Quarter: 2012Q4

REPORT INFORMATION
  Report Type: 
  Country: NL (occurrence: NL)
  Receive Date: 20121227
  Receipt Date: 20121227
  Transmission Date: 20130627
  Serious: Yes (Hospitalization)
  Sender: FDA-Public Use
  Company Number: NL-INCYTE CORPORATION-2012IN002695

PATIENT
  Age: 73 Year
  Sex: Male

DRUGS (1)
  1. INC424 [Suspect]
     Dosage: 15 mg, bid
     Route: 048

REACTIONS (2)
  - Necrotising fasciitis [Unknown]
  - Sepsis [Unknown]
